FAERS Safety Report 17820303 (Version 2)
Quarter: 2020Q2

REPORT INFORMATION
  Report Type: Spontaneous
  Country: US (occurrence: US)
  Receive Date: 20200525
  Receipt Date: 20200603
  Transmission Date: 20200714
  Serious: No
  Sender: FDA-Public Use
  Company Number: US-009507513-2005USA007398

PATIENT
  Sex: Male

DRUGS (2)
  1. CARBIDOPA (+) LEVODOPA [Suspect]
     Active Substance: CARBIDOPA\LEVODOPA
     Indication: PARKINSON^S DISEASE
     Dosage: UNK
     Dates: start: 201811
  2. SINEMET [Suspect]
     Active Substance: CARBIDOPA\LEVODOPA
     Indication: PARKINSON^S DISEASE
     Dosage: 2 TABLETS 4 TIMES A DAY
     Route: 048
     Dates: start: 2012, end: 201811

REACTIONS (3)
  - Dysphemia [Not Recovered/Not Resolved]
  - Product availability issue [Unknown]
  - Dysphonia [Not Recovered/Not Resolved]
